FAERS Safety Report 22714032 (Version 2)
Quarter: 2025Q2

REPORT INFORMATION
  Report Type: Spontaneous
  Country: ES (occurrence: ES)
  Receive Date: 20230717
  Receipt Date: 20250522
  Transmission Date: 20250717
  Serious: Yes (Death, Hospitalization, Other)
  Sender: CELLTRION
  Company Number: ES-CELLTRION INC.-2023ES014003

PATIENT

DRUGS (5)
  1. TRASTUZUMAB [Suspect]
     Active Substance: TRASTUZUMAB
     Indication: Breast cancer
     Route: 065
  2. CYCLOPHOSPHAMIDE [Concomitant]
     Active Substance: CYCLOPHOSPHAMIDE
     Route: 065
  3. PACLITAXEL [Concomitant]
     Active Substance: PACLITAXEL
     Route: 065
  4. PERTUZUMAB [Concomitant]
     Active Substance: PERTUZUMAB
     Route: 065
  5. ADRIAMYCIN [Concomitant]
     Active Substance: DOXORUBICIN HYDROCHLORIDE
     Route: 065

REACTIONS (12)
  - Breast cancer metastatic [Fatal]
  - Postoperative wound complication [Unknown]
  - Unevaluable event [Unknown]
  - Postoperative abscess [Unknown]
  - Post procedural complication [Unknown]
  - Surgical procedure repeated [Unknown]
  - Wound dehiscence [Unknown]
  - Post procedural haematoma [Unknown]
  - Seroma [Unknown]
  - Rash [Unknown]
  - Device failure [Unknown]
  - Off label use [Unknown]
